FAERS Safety Report 16442250 (Version 1)
Quarter: 2019Q2

REPORT INFORMATION
  Report Type: Report from Study
  Country: None (occurrence: US)
  Receive Date: 20190617
  Receipt Date: 20190617
  Transmission Date: 20190711
  Serious: No
  Sender: FDA-Public Use
  Company Number: US-US WORLDMEDS, LLC-USW201902-000405

PATIENT
  Age: 78 Year
  Sex: Male
  Weight: 89.35 kg

DRUGS (48)
  1. APOKYN [Suspect]
     Active Substance: APOMORPHINE HYDROCHLORIDE
  2. NEORAL [Concomitant]
     Active Substance: CYCLOSPORINE
  3. ALLOPURINOL. [Concomitant]
     Active Substance: ALLOPURINOL
  4. CLONIDINE. [Concomitant]
     Active Substance: CLONIDINE
  5. EXELON [Concomitant]
     Active Substance: RIVASTIGMINE TARTRATE
     Indication: DEMENTIA
  6. NEUPRO [Concomitant]
     Active Substance: ROTIGOTINE
  7. ONGLYZA [Concomitant]
     Active Substance: SAXAGLIPTIN HYDROCHLORIDE
  8. VITAMIN D [Concomitant]
     Active Substance: VITAMIN D NOS
  9. APOKYN [Suspect]
     Active Substance: APOMORPHINE HYDROCHLORIDE
     Route: 058
     Dates: start: 20190225
  10. OSCAL [Concomitant]
     Active Substance: CALCIUM CARBONATE
  11. GABAPENTIN. [Concomitant]
     Active Substance: GABAPENTIN
  12. SINEMET [Concomitant]
     Active Substance: CARBIDOPA\LEVODOPA
  13. MECLIZINE [Concomitant]
     Active Substance: MECLIZINE HYDROCHLORIDE
  14. MAGNESIUM [Concomitant]
     Active Substance: MAGNESIUM
  15. APOKYN [Suspect]
     Active Substance: APOMORPHINE HYDROCHLORIDE
     Indication: PARKINSON^S DISEASE
     Route: 058
     Dates: start: 20190220
  16. ASA [Concomitant]
     Active Substance: ASPIRIN
  17. ZOLPIDEM [Concomitant]
     Active Substance: ZOLPIDEM\ZOLPIDEM TARTRATE
     Indication: INSOMNIA
  18. FUROSEMIDE. [Concomitant]
     Active Substance: FUROSEMIDE
  19. ALLEGRA [Concomitant]
     Active Substance: FEXOFENADINE HYDROCHLORIDE
     Indication: HYPERSENSITIVITY
  20. GLIPIZIDE. [Concomitant]
     Active Substance: GLIPIZIDE
  21. NEORAL [Concomitant]
     Active Substance: CYCLOSPORINE
  22. LEVOTHYROXINE. [Concomitant]
     Active Substance: LEVOTHYROXINE
  23. METOPROLOL. [Concomitant]
     Active Substance: METOPROLOL
  24. ACETAMINOPHEN. [Concomitant]
     Active Substance: ACETAMINOPHEN
  25. TRIMETHOBENZAMIDE [Concomitant]
     Active Substance: TRIMETHOBENZAMIDE
  26. SINEMET [Concomitant]
     Active Substance: CARBIDOPA\LEVODOPA
  27. BABY ASPIRIN [Concomitant]
     Active Substance: ASPIRIN
  28. ENTECAVIR. [Concomitant]
     Active Substance: ENTECAVIR
  29. SINEMET [Concomitant]
     Active Substance: CARBIDOPA\LEVODOPA
  30. ALENDRONATE SODIUM. [Concomitant]
     Active Substance: ALENDRONATE SODIUM
  31. AMBIEN [Concomitant]
     Active Substance: ZOLPIDEM TARTRATE
  32. LASIX [Concomitant]
     Active Substance: FUROSEMIDE
  33. SERTRALINE [Concomitant]
     Active Substance: SERTRALINE HYDROCHLORIDE
  34. MAG OXIDE [Concomitant]
     Active Substance: MAGNESIUM OXIDE
  35. ALENDRONATE [Concomitant]
     Active Substance: ALENDRONATE SODIUM
  36. METOPROLOL. [Concomitant]
     Active Substance: METOPROLOL
  37. CLONIDINE. [Concomitant]
     Active Substance: CLONIDINE
  38. MELATONIN [Concomitant]
     Active Substance: MELATONIN
  39. BIOFREEZE [Concomitant]
     Active Substance: MENTHOL
  40. ERGOCALCIFEROL. [Concomitant]
     Active Substance: ERGOCALCIFEROL
  41. NEORAL [Concomitant]
     Active Substance: CYCLOSPORINE
  42. CHOLESTEROL [Concomitant]
     Active Substance: CHOLESTEROL
  43. SINEMET [Concomitant]
     Active Substance: CARBIDOPA\LEVODOPA
  44. NEORAL [Concomitant]
     Active Substance: CYCLOSPORINE
  45. OSCAL [Concomitant]
     Active Substance: CALCIUM CARBONATE
  46. LEVOTHYROXINE. [Concomitant]
     Active Substance: LEVOTHYROXINE
  47. GABAPENTIN. [Concomitant]
     Active Substance: GABAPENTIN
  48. SERTRALINE [Concomitant]
     Active Substance: SERTRALINE HYDROCHLORIDE
     Indication: DEPRESSION

REACTIONS (5)
  - Somnolence [Recovered/Resolved]
  - Nausea [Recovered/Resolved]
  - Dizziness [Recovered/Resolved]
  - Fall [Recovered/Resolved]
  - Drug ineffective [Unknown]

NARRATIVE: CASE EVENT DATE: 20190220
